FAERS Safety Report 16555977 (Version 4)
Quarter: 2020Q3

REPORT INFORMATION
  Report Type: Report from Study
  Country: GB (occurrence: GB)
  Receive Date: 20190710
  Receipt Date: 20200921
  Transmission Date: 20201102
  Serious: No
  Sender: FDA-Public Use
  Company Number: GB-PFIZER INC-2019286947

PATIENT
  Age: 38 Year
  Sex: Female

DRUGS (36)
  1. TRASTUZUMAB. [Suspect]
     Active Substance: TRASTUZUMAB
     Dosage: 598.5 MG, UNK
     Route: 042
     Dates: start: 20161108
  2. PERTUZUMAB. [Suspect]
     Active Substance: PERTUZUMAB
     Dosage: UNK
     Route: 042
  3. PARACETAMOL [Concomitant]
     Active Substance: ACETAMINOPHEN
     Dosage: 1 G, 4 TIMES DAILY AS NEEDED
     Route: 048
  4. CHLORPHENAMINE [Concomitant]
     Active Substance: CHLORPHENIRAMINE MALEATE
     Dosage: 4 MG, 1X/DAY
     Route: 048
     Dates: start: 20160426
  5. ZOLEDRONIC ACID [Concomitant]
     Active Substance: ZOLEDRONIC ACID
     Indication: BREAST CANCER METASTATIC
     Dosage: 4 MG, EVERY 3 WEEKS
     Route: 042
     Dates: start: 20151020
  6. PIPERACILLIN SODIUM [Concomitant]
     Active Substance: PIPERACILLIN SODIUM
     Dosage: UNK
  7. MOMETASONE FUROATE. [Concomitant]
     Active Substance: MOMETASONE FUROATE
     Indication: NEURODERMATITIS
     Dosage: UNK
  8. TRASTUZUMAB. [Suspect]
     Active Substance: TRASTUZUMAB
     Dosage: 714 MG, UNK
     Route: 042
     Dates: start: 20160202
  9. PERTUZUMAB. [Suspect]
     Active Substance: PERTUZUMAB
     Indication: BREAST CANCER METASTATIC
     Dosage: 840 MG, LOADING DOSE
     Route: 042
     Dates: start: 20151020, end: 20151020
  10. IBUPROFEN. [Concomitant]
     Active Substance: IBUPROFEN
     Dosage: 400 MG, 3 TIMES DAILY AS NEEDED
     Route: 048
  11. SYNACTHEN [TETRACOSACTIDE ACETATE] [Concomitant]
     Indication: DYSPNOEA
     Dosage: 250 UG TWO DOSES 8 DAYS APART
     Route: 042
     Dates: start: 20160427, end: 20160505
  12. TRASTUZUMAB. [Suspect]
     Active Substance: TRASTUZUMAB
     Dosage: 672 MG, MAINTENANCE DOSE
     Route: 042
     Dates: start: 20151110
  13. PREDNISOLONE. [Concomitant]
     Active Substance: PREDNISOLONE
     Dosage: 30 MG
     Route: 048
     Dates: start: 2010
  14. ADCAL D3 [Concomitant]
     Active Substance: CALCIUM CARBONATE\CHOLECALCIFEROL
     Dosage: 2 TABLETS, 1X/DAY
     Route: 048
  15. ZOMORPH [Concomitant]
     Active Substance: MORPHINE SULFATE
     Dosage: 260 MG, 1X/DAY
     Route: 048
  16. SENNA [SENNA ALEXANDRINA] [Concomitant]
     Active Substance: SENNA LEAF
     Dosage: 7.5 MG, AS NEEDED
     Route: 048
  17. TRASTUZUMAB. [Suspect]
     Active Substance: TRASTUZUMAB
     Indication: BREAST CANCER METASTATIC
     Dosage: 903 MG, LOADING DOSE
     Route: 042
     Dates: start: 20151020
  18. PERTUZUMAB. [Suspect]
     Active Substance: PERTUZUMAB
     Dosage: 420 MG, EVERY 3 WEEKS
     Route: 042
     Dates: start: 20151110, end: 20151110
  19. GOSERELIN [Concomitant]
     Active Substance: GOSERELIN
     Dosage: 10.8 MG, EVERY 3 MONTHS
     Route: 058
     Dates: start: 20160526
  20. DOCUSATE [Concomitant]
     Active Substance: DOCUSATE
     Dosage: 100 MG, AS NEEDED
     Route: 048
  21. ENOXAPARIN [Concomitant]
     Active Substance: ENOXAPARIN
     Indication: VASCULAR DEVICE INFECTION
     Dosage: 180 MG, 1X/DAY
     Route: 058
     Dates: start: 20160530, end: 20160602
  22. MEROPENEM. [Concomitant]
     Active Substance: MEROPENEM
     Indication: VASCULAR DEVICE INFECTION
     Dosage: 3 G, 1X/DAY
     Route: 042
     Dates: start: 20160531, end: 20160601
  23. ZERODERM [Concomitant]
     Indication: NEURODERMATITIS
     Dosage: 1 DF, 1X/DAY AS A SOAP SUBSTITUTE
     Route: 061
     Dates: start: 20160512, end: 201605
  24. GOSERELIN [Concomitant]
     Active Substance: GOSERELIN
     Dosage: 3.6 MG, MONTHLY
     Route: 058
     Dates: end: 20160525
  25. TAZOCIN [Concomitant]
     Active Substance: PIPERACILLIN SODIUM\TAZOBACTAM SODIUM
     Indication: VASCULAR DEVICE INFECTION
     Dosage: 13.5 G, 1X/DAY
     Route: 042
     Dates: start: 20160531, end: 20160531
  26. DOCETAXEL. [Suspect]
     Active Substance: DOCETAXEL
     Indication: BREAST CANCER METASTATIC
     Dosage: 150 MG, EVERY 3 WEEKS
     Route: 042
     Dates: start: 20151021, end: 20160113
  27. AMITRIPTYLINE [Concomitant]
     Active Substance: AMITRIPTYLINE
     Dosage: 25 MG, 1X/DAY
     Route: 048
  28. METOCLOPRAMIDE. [Concomitant]
     Active Substance: METOCLOPRAMIDE
     Indication: DYSPNOEA
     Dosage: 10 MG, UNK
     Route: 048
     Dates: start: 20160423, end: 20160506
  29. TEICOPLANIN [Concomitant]
     Active Substance: TEICOPLANIN
     Indication: VASCULAR DEVICE INFECTION
     Dosage: 600 MG
     Route: 042
     Dates: start: 20160530, end: 20160605
  30. SPIRONOLACTONE. [Concomitant]
     Active Substance: SPIRONOLACTONE
     Indication: DYSPNOEA
     Dosage: 25 MG, 1X/DAY
     Route: 048
     Dates: start: 20150504
  31. LANSOPRAZOLE. [Concomitant]
     Active Substance: LANSOPRAZOLE
     Dosage: 30 MG, 1X/DAY
     Route: 048
  32. ANASTROZOLE. [Concomitant]
     Active Substance: ANASTROZOLE
     Dosage: 1 MG, 1X/DAY RECOMMENCED ENDOCRINE TREATMENT ON COMPLETION OF CHEMOTHERAPY
     Route: 048
     Dates: start: 201604
  33. FLUCLOXACILLIN [Concomitant]
     Active Substance: FLUCLOXACILLIN
     Dosage: 500 MG, 4X/DAY
     Route: 048
     Dates: start: 20160113, end: 20160119
  34. FUROSEMIDE. [Concomitant]
     Active Substance: FUROSEMIDE
     Dosage: 40 MG, 1X/DAY
     Route: 048
     Dates: start: 20160504
  35. PREDNISOLONE. [Concomitant]
     Active Substance: PREDNISOLONE
     Dosage: 10 MG
     Route: 048
     Dates: start: 2016
  36. MORPHINE SULPHATE [Concomitant]
     Active Substance: MORPHINE SULFATE
     Dosage: 30 MG, HOURLY AS NEEDED
     Route: 048

REACTIONS (3)
  - Neuropathy peripheral [Recovered/Resolved]
  - Fatigue [Recovered/Resolved]
  - Diarrhoea [Recovered/Resolved]

NARRATIVE: CASE EVENT DATE: 201601
